FAERS Safety Report 7491246-7 (Version None)
Quarter: 2011Q2

REPORT INFORMATION
  Report Type: 
  Country: None (occurrence: None)
  Receive Date: 20110519
  Receipt Date: 20110509
  Transmission Date: 20111010
  Serious: Yes (Hospitalization)
  Sender: FDA-Public Use
  Company Number: A0882227B

PATIENT
  Age: 49 Year
  Sex: Female
  Weight: 65.8 kg

DRUGS (10)
  1. PHENERGAN HCL [Concomitant]
     Indication: NAUSEA
     Dosage: 25MG AS REQUIRED
     Route: 048
  2. OMEPRAZOLE [Concomitant]
     Dosage: 40MG PER DAY
     Route: 048
  3. LAPATINIB [Suspect]
     Indication: BREAST CANCER
     Dosage: 750MG PER DAY
     Route: 048
     Dates: start: 20100512, end: 20110406
  4. CARBOPLATIN [Suspect]
     Indication: BREAST CANCER
     Route: 042
     Dates: start: 20100512
  5. TRASTUZUMAB [Suspect]
     Indication: BREAST CANCER
     Dosage: 4MGK CYCLIC
     Route: 042
     Dates: start: 20100512, end: 20110406
  6. RADIOTHERAPY [Concomitant]
     Indication: BREAST CANCER
     Dosage: 6000CGY CUMULATIVE DOSE
     Route: 061
  7. PERCOCET [Concomitant]
     Indication: PAIN
     Route: 048
  8. DOCETAXEL [Suspect]
     Indication: BREAST CANCER
     Dosage: 75MGK EVERY 3 WEEKS
     Dates: start: 20100512
  9. GABAPENTIN [Concomitant]
     Dosage: 800MG TWICE PER DAY
     Route: 048
  10. PHENERGAN HCL [Concomitant]
     Route: 055

REACTIONS (6)
  - DIARRHOEA [None]
  - DEHYDRATION [None]
  - COLITIS [None]
  - ABDOMINAL PAIN [None]
  - HYPERNATRAEMIA [None]
  - NAUSEA [None]
